FAERS Safety Report 20244912 (Version 15)
Quarter: 2023Q2

REPORT INFORMATION
  Report Type: Spontaneous
  Country: CA (occurrence: CA)
  Receive Date: 20211229
  Receipt Date: 20230622
  Transmission Date: 20230722
  Serious: Yes (Other)
  Sender: FDA-Public Use
  Company Number: CA-CELLTRION INC.-2021CA005421

PATIENT

DRUGS (31)
  1. INFLECTRA [Suspect]
     Active Substance: INFLIXIMAB-DYYB
     Indication: Crohn^s disease
     Dosage: 10 MG/KG, 0, 2, 6, THEN EVERY 8 WEEKS
     Route: 041
     Dates: start: 20210413, end: 20210721
  2. INFLECTRA [Suspect]
     Active Substance: INFLIXIMAB-DYYB
     Dosage: 10 MG/KG, 0, 2, 6, THEN EVERY 8 WEEKS
     Route: 041
     Dates: start: 20210511
  3. INFLECTRA [Suspect]
     Active Substance: INFLIXIMAB-DYYB
     Dosage: 10 MG/KG, 0, 2, 6, THEN EVERY 8 WEEKS
     Route: 041
     Dates: start: 20210526
  4. INFLECTRA [Suspect]
     Active Substance: INFLIXIMAB-DYYB
     Dosage: 10 MG/KG, 0, 2, 6, THEN EVERY 8 WEEKS
     Route: 041
     Dates: start: 20210721
  5. INFLECTRA [Suspect]
     Active Substance: INFLIXIMAB-DYYB
     Dosage: 1300 MG
     Route: 041
     Dates: start: 20210909
  6. INFLECTRA [Suspect]
     Active Substance: INFLIXIMAB-DYYB
     Dosage: 10 MG/KG ,REINDUCTION 0, 2, 6, THEN Q4WEEKS
     Route: 042
     Dates: start: 20210909
  7. INFLECTRA [Suspect]
     Active Substance: INFLIXIMAB-DYYB
     Dosage: 10 MG/KG, 0, 2, 6, THEN EVERY 8 WEEKS
     Route: 041
     Dates: start: 20210921
  8. INFLECTRA [Suspect]
     Active Substance: INFLIXIMAB-DYYB
     Dosage: 10 MG/KG, 0, 2, 6, THEN EVERY 8 WEEKS
     Route: 041
     Dates: start: 20210921
  9. INFLECTRA [Suspect]
     Active Substance: INFLIXIMAB-DYYB
     Dosage: 1300 MG
     Route: 041
     Dates: start: 20211019
  10. INFLECTRA [Suspect]
     Active Substance: INFLIXIMAB-DYYB
     Dosage: 10 MG/KG, REINDUCTION 0, 2, 6, THEN Q4WEEKS
     Route: 042
     Dates: start: 20210909
  11. INFLECTRA [Suspect]
     Active Substance: INFLIXIMAB-DYYB
     Dosage: 10 MG/KG, 0, 2 AND 6 THEN EVERY 8 WEEKS
     Route: 041
     Dates: start: 20211117
  12. INFLECTRA [Suspect]
     Active Substance: INFLIXIMAB-DYYB
     Dosage: 10 MG/KG, 0, 2, 6 THEN EVERY 8 WEEKS
     Route: 041
     Dates: start: 20211215
  13. INFLECTRA [Suspect]
     Active Substance: INFLIXIMAB-DYYB
     Dosage: 10 MG/KG, 0, 2, 6 THEN EVERY 8 WEEKS
     Route: 041
     Dates: start: 20220112
  14. INFLECTRA [Suspect]
     Active Substance: INFLIXIMAB-DYYB
     Dosage: 10 MG/KG, 0, 2, 6 THEN EVERY 8 WEEKS
     Route: 041
     Dates: start: 20220209
  15. INFLECTRA [Suspect]
     Active Substance: INFLIXIMAB-DYYB
     Dosage: 10 MG/KG, REINDUCTION 0, 2, 6, THEN Q4WEEKS
     Route: 042
     Dates: start: 20220209
  16. INFLECTRA [Suspect]
     Active Substance: INFLIXIMAB-DYYB
     Dosage: 10 MG/KG, REINDUCTION 0, 2, 6, THEN Q4WEEKS
     Route: 042
     Dates: start: 20220307
  17. INFLECTRA [Suspect]
     Active Substance: INFLIXIMAB-DYYB
     Dosage: 10 MG/KG ,REINDUCTION 0, 2, 6 THEN Q4WEEKS
     Route: 042
     Dates: start: 20220408
  18. INFLECTRA [Suspect]
     Active Substance: INFLIXIMAB-DYYB
     Dosage: 10 MG/KG ,REINDUCTION 0, 2, 6, THEN Q4WEEKS
     Route: 042
     Dates: start: 20220504
  19. INFLECTRA [Suspect]
     Active Substance: INFLIXIMAB-DYYB
     Dosage: 10 MG/KG, REINDUCTION 0, 2, 6, THEN Q4WEEKS
     Route: 042
     Dates: start: 20220601
  20. INFLECTRA [Suspect]
     Active Substance: INFLIXIMAB-DYYB
     Dosage: 10 MG/KG, REINDUCTION 0, 2, 6, THEN Q4WEEKS
     Route: 042
     Dates: start: 20220628
  21. INFLECTRA [Suspect]
     Active Substance: INFLIXIMAB-DYYB
     Dosage: 10 MG/KG  REINDUCTION 0, 2, 6, THEN Q4WEEKS
     Route: 042
     Dates: start: 20220728
  22. INFLECTRA [Suspect]
     Active Substance: INFLIXIMAB-DYYB
     Dosage: 10 MG/KG  REINDUCTION 0, 2, 6, THEN Q4WEEKS
     Route: 042
     Dates: start: 20220824
  23. INFLECTRA [Suspect]
     Active Substance: INFLIXIMAB-DYYB
     Dosage: 10 MG/KG  REINDUCTION 0, 2, 6, THEN Q4WEEKS
     Route: 042
     Dates: start: 20220922
  24. INFLECTRA [Suspect]
     Active Substance: INFLIXIMAB-DYYB
     Dosage: 10 MG/KG  REINDUCTION 0, 2, 6, THEN Q4WEEKS
     Route: 042
     Dates: start: 20220922
  25. INFLECTRA [Suspect]
     Active Substance: INFLIXIMAB-DYYB
     Dosage: 10 MG/KG  REINDUCTION 0, 2, 6, THEN Q4WEEKS
     Route: 042
     Dates: start: 20221019
  26. INFLECTRA [Suspect]
     Active Substance: INFLIXIMAB-DYYB
     Dosage: 10 MG/KG  REINDUCTION 0, 2, 6, THEN Q4WEEKS
     Route: 042
     Dates: start: 20221221
  27. INFLECTRA [Suspect]
     Active Substance: INFLIXIMAB-DYYB
     Dosage: 10 MG/KG  REINDUCTION 0, 2, 6, THEN Q4WEEKS
     Route: 042
     Dates: start: 20230118
  28. INFLECTRA [Suspect]
     Active Substance: INFLIXIMAB-DYYB
     Dosage: 10 MG/KG (1200 MG Q4 WEEK)  REINDUCTION 0, 2, 6, THEN Q4WEEKS
     Route: 042
     Dates: start: 20230215
  29. INSULIN NOS [Concomitant]
     Active Substance: INSULIN NOS
     Dosage: UNK
  30. PREDNISONE [Concomitant]
     Active Substance: PREDNISONE
     Dosage: 1 DF, DOSAGE NOT AVAILABLE
     Route: 065
     Dates: start: 2015
  31. MESALAMINE [Concomitant]
     Active Substance: MESALAMINE
     Dosage: 1 DF, DOSAGE NOT AVAILABLE
     Route: 065
     Dates: start: 2015

REACTIONS (17)
  - Colorectal cancer [Unknown]
  - Condition aggravated [Recovered/Resolved]
  - Skin cancer [Not Recovered/Not Resolved]
  - Drug level below therapeutic [Not Recovered/Not Resolved]
  - Drug ineffective [Unknown]
  - Blood pressure increased [Unknown]
  - Arthralgia [Not Recovered/Not Resolved]
  - Ocular hyperaemia [Not Recovered/Not Resolved]
  - Discomfort [Unknown]
  - Muscle spasms [Not Recovered/Not Resolved]
  - Erythema nodosum [Unknown]
  - Condition aggravated [Recovered/Resolved]
  - Otitis externa [Not Recovered/Not Resolved]
  - Ear pain [Unknown]
  - Off label use [Unknown]
  - Off label use [Unknown]
  - Intentional product use issue [Unknown]

NARRATIVE: CASE EVENT DATE: 20210701
